FAERS Safety Report 8959799 (Version 1)
Quarter: 2012Q4

REPORT INFORMATION
  Report Type: 
  Country: US (occurrence: US)
  Receive Date: 20121212
  Receipt Date: 20121212
  Transmission Date: 20130627
  Serious: No
  Sender: FDA-Public Use
  Company Number: US-TEVA-320436USA

PATIENT
  Age: 2 Year
  Sex: Male

DRUGS (1)
  1. BUDESONIDE [Suspect]
     Dosage: 0.25 mg/2 ml

REACTIONS (4)
  - Drug administration error [Unknown]
  - Ocular hyperaemia [Unknown]
  - Lacrimation increased [Unknown]
  - Eye infection [Unknown]
